FAERS Safety Report 8687604 (Version 2)
Quarter: 2013Q4

REPORT INFORMATION
  Report Type: Spontaneous
  Country: US (occurrence: US)
  Receive Date: 20120727
  Receipt Date: 20131031
  Transmission Date: 20140711
  Serious: Yes (Hospitalization)
  Sender: FDA-Public Use
  Company Number: US-MSD-1207USA010071

PATIENT
  Sex: 0

DRUGS (3)
  1. JANUVIA [Suspect]
     Dosage: UNK
     Route: 048
  2. VELCADE [Suspect]
     Dosage: 1.3 MG/M2, UNK
     Route: 042
  3. DEXAMETHASONE [Concomitant]
     Dosage: 20 MG, UNK

REACTIONS (5)
  - Amylase increased [Unknown]
  - Pyrexia [Unknown]
  - Lipase increased [Unknown]
  - Vomiting [Unknown]
  - Platelet count decreased [Unknown]
